FAERS Safety Report 12999016 (Version 2)
Quarter: 2017Q1

REPORT INFORMATION
  Report Type: Spontaneous
  Country: US (occurrence: US)
  Receive Date: 20161205
  Receipt Date: 20170102
  Transmission Date: 20170428
  Serious: No
  Sender: FDA-Public Use
  Company Number: US-009507513-1611USA009912

PATIENT
  Age: 22 Year
  Sex: Female

DRUGS (2)
  1. NEXPLANON [Suspect]
     Active Substance: ETONOGESTREL
     Dosage: 68 MG IMPLANT, UNK
     Route: 059
     Dates: start: 20161102, end: 20161107
  2. NEXPLANON [Suspect]
     Active Substance: ETONOGESTREL
     Indication: CONTRACEPTION
     Dosage: 68 MG IMPLANT, UNK
     Route: 059
     Dates: start: 20131031, end: 20161102

REACTIONS (4)
  - Implant site extravasation [Recovered/Resolved]
  - Implant site extravasation [Unknown]
  - Incorrect drug administration duration [Unknown]
  - Implant site extravasation [Recovered/Resolved]

NARRATIVE: CASE EVENT DATE: 201611
